FAERS Safety Report 9500313 (Version 1)
Quarter: 2013Q3

REPORT INFORMATION
  Report Type: Spontaneous
  Country: US (occurrence: None)
  Receive Date: 20130903
  Receipt Date: 20130903
  Transmission Date: 20140515
  Serious: Yes (Disabling, Other)
  Sender: FDA-Public Use
  Company Number: ACO_38121_2013

PATIENT
  Age: 63 Year
  Sex: Female

DRUGS (21)
  1. AMPYRA [Suspect]
     Indication: GAIT DISTURBANCE
     Route: 048
     Dates: start: 20130820, end: 20130821
  2. AMPYRA [Suspect]
     Indication: MULTIPLE SCLEROSIS
     Route: 048
     Dates: start: 20130820, end: 20130821
  3. TRIMETHOPRIM (TRIMETHOPRIM) [Concomitant]
  4. METHYLPREDNISOLONE (METHYLPREDNISOLONE) [Concomitant]
  5. CIPRO (CIPROFLOXACIN) 500 MG [Concomitant]
  6. VENTOLIN (SALBUTAMOL SULFATE) [Concomitant]
  7. CALCIUM CARBONATE (CALCIUM CARBONATE) [Concomitant]
  8. ECOTRIN (ACETYLSALICYLIC ACID) [Concomitant]
  9. FISH OIL NATURE MADE (FISH OIL) [Concomitant]
  10. GLUCOSAMINE (GLUCOSAMINE) [Concomitant]
  11. MULTIVITAMIN (VITAMINS NOS) [Concomitant]
  12. VITAMIN D (ERGOCALCIFEROL) [Concomitant]
  13. BACLOFEN (BACLOFEN), 20 MG [Concomitant]
  14. FLAVOXATE HCL (FLAVOXATE HYDROCHLORIDE) [Concomitant]
  15. OXYBUTYNIN CHLORIDE (OXYBUTYNIN HYDROCHLORIDE) 5 MG [Concomitant]
  16. MORPHINE SULFATE (MORPHINE SULFATE) 30 MG [Concomitant]
  17. RITALIN (METHYLPHENIDATE HYDROCHLORIDE) 20 MG [Concomitant]
  18. CLONAZEPAM (CLONAZEPAM), 1 MG [Concomitant]
  19. SEPTRA (SULFAMETHOXAZOLE, TRIMETHOPRIM) [Concomitant]
  20. AMLODIPINE (AMLODIPINE BESILATE), 5MG [Concomitant]
  21. AMBIEN CR (ZOLPIDEM TARTRATE), 12.5 MG [Concomitant]

REACTIONS (6)
  - Activities of daily living impaired [None]
  - Confusional state [None]
  - Feeling abnormal [None]
  - Lethargy [None]
  - Dysarthria [None]
  - Fatigue [None]
